FAERS Safety Report 4543327-5 (Version None)
Quarter: 2005Q1

REPORT INFORMATION
  Report Type: 
  Country: None (occurrence: None)
  Receive Date: 20050103
  Receipt Date: 20041227
  Transmission Date: 20050727
  Serious: Yes (Death, Other)
  Sender: FDA-Public Use
  Company Number: US-JNJFOC-20041200634

PATIENT
  Sex: Female

DRUGS (1)
  1. DOXIL [Suspect]
     Indication: BREAST CANCER
     Route: 042

REACTIONS (7)
  - AMMONIA INCREASED [None]
  - BREAST CANCER METASTATIC [None]
  - CONFUSIONAL STATE [None]
  - DELIRIUM [None]
  - HEPATIC ENCEPHALOPATHY [None]
  - MENTAL STATUS CHANGES [None]
  - METASTASES TO LIVER [None]
